FAERS Safety Report 9827129 (Version 1)
Quarter: 2014Q1

REPORT INFORMATION
  Report Type: Spontaneous
  Country: US (occurrence: US)
  Receive Date: 20140117
  Receipt Date: 20140117
  Transmission Date: 20141002
  Serious: Yes (Hospitalization)
  Sender: FDA-Public Use
  Company Number: US-SA-2014SA005625

PATIENT
  Age: 63 Year
  Sex: Male

DRUGS (1)
  1. DOCETAXEL [Suspect]
     Indication: PROSTATE CANCER METASTATIC
     Route: 065

REACTIONS (3)
  - Cholecystitis chronic [Recovered/Resolved]
  - Gallbladder cholesterolosis [Recovered/Resolved]
  - Colitis ischaemic [Recovered/Resolved]
